FAERS Safety Report 9213791 (Version 2)
Quarter: 2013Q2

REPORT INFORMATION
  Report Type: Spontaneous
  Country: US (occurrence: US)
  Receive Date: 20130405
  Receipt Date: 20130424
  Transmission Date: 20140414
  Serious: Yes (Hospitalization)
  Sender: FDA-Public Use
  Company Number: US-BAYER-2013-040360

PATIENT
  Age: 46 Year
  Sex: Female
  Weight: 59.41 kg

DRUGS (4)
  1. YAZ [Suspect]
     Dosage: UNK
     Dates: start: 200906, end: 201112
  2. GIANVI [Suspect]
     Dosage: UNK
     Dates: start: 200906, end: 201112
  3. HYDROCODONE W/ACETAMINOPHEN [Concomitant]
  4. FLEXERIL [Concomitant]

REACTIONS (6)
  - Deep vein thrombosis [None]
  - Pulmonary embolism [None]
  - Injury [None]
  - Pain [None]
  - Emotional distress [None]
  - Pain [None]
